FAERS Safety Report 9755098 (Version 1)
Quarter: 2013Q4

REPORT INFORMATION
  Report Type: Spontaneous
  Country: US (occurrence: US)
  Receive Date: 20131213
  Receipt Date: 20131213
  Transmission Date: 20140711
  Serious: No
  Sender: FDA-Public Use
  Company Number: US-GLAXOSMITHKLINE-A1011423A

PATIENT
  Age: 70 Year
  Sex: Male

DRUGS (2)
  1. NICODERM CQ CLEAR 14MG [Suspect]
     Dates: start: 20130126
  2. NICODERM CQ CLEAR 21MG [Suspect]

REACTIONS (5)
  - Abnormal dreams [Not Recovered/Not Resolved]
  - Overdose [Not Recovered/Not Resolved]
  - Drug ineffective [Unknown]
  - Drug administration error [Unknown]
  - Anxiety [Not Recovered/Not Resolved]
